FAERS Safety Report 6464472-3 (Version None)
Quarter: 2009Q4

REPORT INFORMATION
  Report Type: 
  Country: None (occurrence: None)
  Receive Date: 20091118
  Receipt Date: 20090604
  Transmission Date: 20100525
  Serious: Yes (Hospitalization)
  Sender: FDA-Public Use
  Company Number: 2009BI006013

PATIENT
  Age: 50 Year
  Sex: Female

DRUGS (1)
  1. TYSABRI [Suspect]
     Indication: CROHN'S DISEASE
     Dosage: 300 MG; QM; IV
     Route: 042
     Dates: start: 20080820, end: 20090604

REACTIONS (5)
  - ABDOMINAL PAIN [None]
  - DRUG INEFFECTIVE [None]
  - ENTEROCOCCAL INFECTION [None]
  - INTESTINAL OBSTRUCTION [None]
  - PYODERMA GANGRENOSUM [None]
